FAERS Safety Report 8511616-5 (Version None)
Quarter: 2012Q3

REPORT INFORMATION
  Report Type: 
  Country: None (occurrence: None)
  Receive Date: 20120716
  Receipt Date: 20120704
  Transmission Date: 20120928
  Serious: Yes (Hospitalization)
  Sender: FDA-Public Use
  Company Number: IT-BAYER-2012-054186

PATIENT
  Age: 28 Year
  Sex: Male

DRUGS (11)
  1. SORAFENIB (RAF KINASE INHIBITOR) [Suspect]
     Dosage: DAILY DOSE 600 MG
     Dates: start: 20081215
  2. SORAFENIB (RAF KINASE INHIBITOR) [Suspect]
     Dosage: DAILY DOSE 400 MG
     Dates: start: 20090612
  3. ZOLEDRONIC ACID [Concomitant]
     Indication: METASTASES TO BONE
     Dosage: DAILY DOSE 4 MG (Q 4 WEEKS)
     Route: 042
     Dates: start: 20080707, end: 20090904
  4. TRAMADOL HCL [Concomitant]
     Indication: PAIN
     Dosage: 20 (?) 3/DIE
     Route: 048
  5. SORAFENIB (RAF KINASE INHIBITOR) [Suspect]
     Indication: METASTATIC RENAL CELL CARCINOMA
     Dosage: DAILY DOSE 800 MG
     Dates: start: 20081117
  6. SORAFENIB (RAF KINASE INHIBITOR) [Suspect]
     Dosage: DAILY DOSE 400 MG
     Dates: start: 20090515
  7. SORAFENIB (RAF KINASE INHIBITOR) [Suspect]
     Dosage: DAILY DOSE 600 MG
     Dates: start: 20090911, end: 20090915
  8. ORUDIS [Concomitant]
     Indication: PAIN
     Dosage: 3 DIE
  9. SORAFENIB (RAF KINASE INHIBITOR) [Suspect]
     Dosage: DAILY DOSE 400 MG
     Dates: start: 20081201
  10. SORAFENIB (RAF KINASE INHIBITOR) [Suspect]
     Dosage: DAILY DOSE 600 MG
     Dates: start: 20090618, end: 20090904
  11. MEDROL [Concomitant]
     Indication: PAIN
     Dosage: DAILY DOSE 16 MG
     Route: 048

REACTIONS (4)
  - TRANSAMINASES INCREASED [None]
  - SKIN TOXICITY [None]
  - ASTHENIA [None]
  - ANAEMIA [None]
